FAERS Safety Report 12648214 (Version 2)
Quarter: 2017Q1

REPORT INFORMATION
  Report Type: Spontaneous
  Country: US (occurrence: US)
  Receive Date: 20160812
  Receipt Date: 20170302
  Transmission Date: 20170428
  Serious: Yes (Death, Hospitalization)
  Sender: FDA-Public Use
  Company Number: US-PFIZER INC-2016378705

PATIENT
  Age: 54 Year
  Sex: Female

DRUGS (2)
  1. ASPIRIN. [Suspect]
     Active Substance: ASPIRIN
     Dosage: OVER 100 TABLETS
  2. IBUPROFEN. [Suspect]
     Active Substance: IBUPROFEN
     Dosage: OVER 60 TABLETS

REACTIONS (2)
  - Toxicity to various agents [Fatal]
  - Overdose [Fatal]
